FAERS Safety Report 9179862 (Version 1)
Quarter: 2012Q4

REPORT INFORMATION
  Report Type: 
  Country: BR (occurrence: BR)
  Receive Date: 20121029
  Receipt Date: 20121029
  Transmission Date: 20130627
  Serious: Yes (Other)
  Sender: FDA-Public Use
  Company Number: BR-JNJFOC-20121013003

PATIENT
  Age: 56 Year
  Sex: Male
  Weight: 70 kg

DRUGS (2)
  1. REMICADE [Suspect]
     Indication: PSORIASIS
     Dosage: Currently in the maintenance phase, performing the infusion each 2 months
     Route: 042
     Dates: start: 20121011
  2. REMICADE [Suspect]
     Indication: PSORIASIS
     Route: 042
     Dates: start: 20110926

REACTIONS (3)
  - Tremor [Recovered/Resolved]
  - Pain [Recovered/Resolved]
  - Infusion related reaction [Recovered/Resolved]
